FAERS Safety Report 4404914-8 (Version None)
Quarter: 2004Q3

REPORT INFORMATION
  Report Type: 
  Country: None (occurrence: None)
  Receive Date: 20040716
  Receipt Date: 20040707
  Transmission Date: 20050211
  Serious: Yes (Hospitalization)
  Sender: FDA-Public Use
  Company Number: 207809

PATIENT
  Age: 21 Year
  Sex: Female
  Weight: 74.8 kg

DRUGS (12)
  1. XOLAIR [Suspect]
     Indication: ASTHMA
     Dosage: 150 MG, Q2W, SUBCUTANEOUS
     Route: 058
     Dates: start: 20040301, end: 20040607
  2. ADVAIR DISKUS [Concomitant]
  3. PULMICORT [Concomitant]
  4. FLONASE [Concomitant]
  5. ACTONEL [Concomitant]
  6. ALLEGRA [Concomitant]
  7. ALBUTEROL (ALBUTEROL SULFATE, ALBUTEROL) [Concomitant]
  8. DARVOCET [Concomitant]
  9. NEURONTIN [Concomitant]
  10. SOMA [Concomitant]
  11. SKELAXIN [Concomitant]
  12. NEXIUM [Concomitant]

REACTIONS (5)
  - DERMATITIS ALLERGIC [None]
  - DRUG INTOLERANCE [None]
  - HERPES SIMPLEX [None]
  - NAUSEA [None]
  - VOMITING [None]
